FAERS Safety Report 20773590 (Version 1)
Quarter: 2022Q2

REPORT INFORMATION
  Report Type: Report from Study
  Country: DO (occurrence: DO)
  Receive Date: 20220502
  Receipt Date: 20220502
  Transmission Date: 20220721
  Serious: Yes (Disabling)
  Sender: FDA-Public Use
  Company Number: DO-NOVARTISPH-NVSC2022DO100333

PATIENT
  Age: 85 Year
  Sex: Female

DRUGS (1)
  1. EXFORGE [Suspect]
     Active Substance: AMLODIPINE BESYLATE\VALSARTAN
     Indication: Product used for unknown indication
     Dosage: MORE THAN 10 YEARS AGO (APPROXIMATELY)
     Route: 065

REACTIONS (2)
  - Aphasia [Unknown]
  - Illness [Unknown]
